FAERS Safety Report 25076927 (Version 5)
Quarter: 2025Q3

REPORT INFORMATION
  Report Type: Report from Study
  Country: CH (occurrence: CH)
  Receive Date: 20250314
  Receipt Date: 20250728
  Transmission Date: 20251020
  Serious: Yes (Hospitalization)
  Sender: ABBVIE
  Company Number: CH-ABBVIE-6174210

PATIENT
  Age: 73 Year
  Sex: Male

DRUGS (12)
  1. CARBIDOPA\LEVODOPA [Suspect]
     Active Substance: CARBIDOPA\LEVODOPA
     Indication: Parkinson^s disease
     Route: 050
     Dates: start: 20170703
  2. CARBIDOPA\LEVODOPA [Suspect]
     Active Substance: CARBIDOPA\LEVODOPA
     Route: 050
     Dates: start: 20240719, end: 20250416
  3. CARBIDOPA\LEVODOPA [Suspect]
     Active Substance: CARBIDOPA\LEVODOPA
     Route: 050
     Dates: start: 20250416, end: 20250422
  4. CARBIDOPA\LEVODOPA [Suspect]
     Active Substance: CARBIDOPA\LEVODOPA
     Route: 050
     Dates: start: 20250422
  5. CARBIDOPA\LEVODOPA [Suspect]
     Active Substance: CARBIDOPA\LEVODOPA
     Dates: start: 2025
  6. QUETIAPINE [Concomitant]
     Active Substance: QUETIAPINE
     Indication: Product used for unknown indication
     Route: 065
  7. ONGENTYS [Concomitant]
     Active Substance: OPICAPONE
     Indication: Product used for unknown indication
     Dosage: START DATE: UNKNOWN
     Route: 065
  8. RIVASTIGMINE [Concomitant]
     Active Substance: RIVASTIGMINE
     Indication: Product used for unknown indication
     Dates: start: 202503
  9. RIVASTIGMINE [Concomitant]
     Active Substance: RIVASTIGMINE
     Indication: Product used for unknown indication
     Dates: start: 202503
  10. XANAX [Concomitant]
     Active Substance: ALPRAZOLAM
     Indication: Product used for unknown indication
     Route: 065
  11. LERCANIDIPINE HYDROCHLORIDE [Concomitant]
     Active Substance: LERCANIDIPINE HYDROCHLORIDE
     Indication: Product used for unknown indication
     Route: 065
  12. AMANTADINE [Suspect]
     Active Substance: AMANTADINE
     Indication: Product used for unknown indication
     Route: 065

REACTIONS (22)
  - Pulmonary embolism [Unknown]
  - Screaming [Not Recovered/Not Resolved]
  - Dyskinesia [Not Recovered/Not Resolved]
  - Muscle rigidity [Not Recovered/Not Resolved]
  - Aggression [Recovered/Resolved]
  - Fall [Recovering/Resolving]
  - Confusional state [Not Recovered/Not Resolved]
  - Sleep disorder [Not Recovered/Not Resolved]
  - Drug intolerance [Unknown]
  - Bradykinesia [Not Recovered/Not Resolved]
  - Device issue [Not Recovered/Not Resolved]
  - Cognitive disorder [Not Recovered/Not Resolved]
  - Lumbar vertebral fracture [Unknown]
  - Disturbance in attention [Unknown]
  - Akinesia [Not Recovered/Not Resolved]
  - Bezoar [Recovered/Resolved]
  - Freezing phenomenon [Recovering/Resolving]
  - Dementia [Not Recovered/Not Resolved]
  - Abdominal symptom [Recovered/Resolved]
  - Stoma site pain [Not Recovered/Not Resolved]
  - Device placement issue [Unknown]
  - Stoma complication [Unknown]

NARRATIVE: CASE EVENT DATE: 20220501
